FAERS Safety Report 22636689 (Version 1)
Quarter: 2023Q2

REPORT INFORMATION
  Report Type: Spontaneous
  Country: US (occurrence: US)
  Receive Date: 20230623
  Receipt Date: 20230623
  Transmission Date: 20230722
  Serious: Yes (Other)
  Sender: FDA-Public Use
  Company Number: US-TEVA-2023-US-2899433

PATIENT
  Age: 47 Year
  Sex: Female

DRUGS (2)
  1. ATENOLOL [Suspect]
     Active Substance: ATENOLOL
     Indication: Blood pressure abnormal
     Dosage: STRENGTH: 50 MG
     Dates: start: 201806
  2. vitamin D3 plus K2 [Concomitant]
     Indication: Product used for unknown indication

REACTIONS (21)
  - Hyperaldosteronism [Unknown]
  - Tricuspid valve disease [Unknown]
  - Mitral valve disease [Unknown]
  - Head discomfort [Unknown]
  - Fatigue [Unknown]
  - Heart rate decreased [Unknown]
  - Headache [Unknown]
  - Fatigue [Unknown]
  - Blood pressure inadequately controlled [Unknown]
  - Malaise [Unknown]
  - Adverse event [Unknown]
  - Hypoaesthesia [Unknown]
  - Head discomfort [Unknown]
  - Pulmonary arterial pressure increased [Unknown]
  - Depression [Unknown]
  - Hepatic steatosis [Unknown]
  - Hernia [Unknown]
  - Coronavirus infection [Unknown]
  - Palpitations [Unknown]
  - Blood potassium decreased [Unknown]
  - Blood aldosterone increased [Unknown]

NARRATIVE: CASE EVENT DATE: 20220701
